FAERS Safety Report 23479406 (Version 1)
Quarter: 2024Q1

REPORT INFORMATION
  Report Type: Spontaneous
  Country: US (occurrence: US)
  Receive Date: 20240205
  Receipt Date: 20240205
  Transmission Date: 20240410
  Serious: No
  Sender: FDA-Public Use
  Company Number: US-TARO PHARMACEUTICALS USA INC.-2023TAR00761

PATIENT

DRUGS (4)
  1. KETOCONAZOLE [Suspect]
     Active Substance: KETOCONAZOLE
     Indication: Seborrhoeic dermatitis
     Dosage: UNK
     Route: 061
  2. ESTRADIOL [Concomitant]
     Active Substance: ESTRADIOL
     Indication: Product used for unknown indication
     Dosage: 8 ML, DAILY
     Route: 065
  3. MEDROXYPROGESTERONE [Concomitant]
     Active Substance: MEDROXYPROGESTERONE
     Indication: Contraception
     Dosage: 10 MG, DAILY
     Route: 065
  4. SPIRONOLACTONE [Concomitant]
     Active Substance: SPIRONOLACTONE
     Indication: Hormone replacement therapy
     Dosage: UNK
     Route: 065

REACTIONS (6)
  - Scab [Unknown]
  - Application site erythema [Unknown]
  - Acne [Unknown]
  - Skin exfoliation [Unknown]
  - Product substitution issue [Unknown]
  - Dermatitis [Unknown]
